FAERS Safety Report 22313996 (Version 1)
Quarter: 2023Q2

REPORT INFORMATION
  Report Type: Spontaneous
  Country: US (occurrence: US)
  Receive Date: 20230512
  Receipt Date: 20230512
  Transmission Date: 20230721
  Serious: Yes (Other)
  Sender: FDA-Public Use
  Company Number: US-MYLANLABS-2023M1049408

PATIENT
  Age: 36 Year
  Sex: Female

DRUGS (5)
  1. OGIVRI [Suspect]
     Active Substance: TRASTUZUMAB-DKST
     Indication: Invasive ductal breast carcinoma
     Dosage: 2 GRAM, QW, INFUSION
     Route: 042
  2. OGIVRI [Suspect]
     Active Substance: TRASTUZUMAB-DKST
     Dosage: 6 GRAM, Q3W, INFUSION (6GM PER INFUSION EVERY THREE WEEKS)
     Route: 042
  3. DOCETAXEL [Concomitant]
     Active Substance: DOCETAXEL
     Indication: Invasive ductal breast carcinoma
     Dosage: UNK, CYCLE (TOTAL SIX CYCLES OF CHEMOTHERAPY EVERY THREE WEEKS)
     Route: 065
  4. CARBOPLATIN [Concomitant]
     Active Substance: CARBOPLATIN
     Indication: Invasive ductal breast carcinoma
     Dosage: UNK, CYCLE (TOTAL SIX CYCLES OF CHEMOTHERAPY EVERY THREE WEEKS)
     Route: 065
  5. LASIX [Concomitant]
     Active Substance: FUROSEMIDE
     Indication: Product used for unknown indication
     Dosage: UNK
     Route: 065

REACTIONS (1)
  - Hypomagnesaemia [Recovering/Resolving]
